FAERS Safety Report 13681539 (Version 1)
Quarter: 2017Q2

REPORT INFORMATION
  Report Type: Spontaneous
  Country: US (occurrence: US)
  Receive Date: 20170623
  Receipt Date: 20170623
  Transmission Date: 20170830
  Serious: Yes (Hospitalization)
  Sender: FDA-Public Use
  Company Number: PHEH2017US018650

PATIENT
  Age: 65 Year
  Sex: Male

DRUGS (1)
  1. ZYKADIA [Suspect]
     Active Substance: CERITINIB
     Indication: NON-SMALL CELL LUNG CANCER METASTATIC
     Dosage: 750 MG, QD
     Route: 048

REACTIONS (4)
  - Nausea [Unknown]
  - Weight decreased [Unknown]
  - Vomiting [Unknown]
  - Diarrhoea [Recovered/Resolved with Sequelae]
